FAERS Safety Report 5681003-6 (Version None)
Quarter: 2008Q1

REPORT INFORMATION
  Report Type: 
  Country: None (occurrence: None)
  Receive Date: 20080326
  Receipt Date: 20080314
  Transmission Date: 20080703
  Serious: Yes (Hospitalization)
  Sender: FDA-Public Use
  Company Number: US-PFIZER INC-2008025268

PATIENT
  Sex: Male

DRUGS (2)
  1. CHANTIX [Suspect]
  2. LOVENOX [Concomitant]

REACTIONS (2)
  - MENTAL STATUS CHANGES [None]
  - PULMONARY EMBOLISM [None]
